FAERS Safety Report 5065892-4 (Version None)
Quarter: 2006Q3

REPORT INFORMATION
  Report Type: 
  Country: None (occurrence: None)
  Receive Date: 20060731
  Receipt Date: 20060609
  Transmission Date: 20061208
  Serious: Yes (Other)
  Sender: FDA-Public Use
  Company Number: US-GLAXOSMITHKLINE-A0608937A

PATIENT
  Sex: Female

DRUGS (1)
  1. AQUAFRESH EXTREME CLEAN ORIGINAL EXPERIENCE + WHITENING TOOTHPASTE [Suspect]
     Indication: DRUG USE FOR UNKNOWN INDICATION

REACTIONS (4)
  - APHASIA [None]
  - PHARYNGEAL HAEMORRHAGE [None]
  - PHARYNGEAL OEDEMA [None]
  - RETCHING [None]
